FAERS Safety Report 4835162-5 (Version None)
Quarter: 2005Q4

REPORT INFORMATION
  Report Type: 
  Country: None (occurrence: None)
  Receive Date: 20051122
  Receipt Date: 20050928
  Transmission Date: 20060501
  Serious: Yes (Hospitalization)
  Sender: FDA-Public Use
  Company Number: US-MERCK-0509USA04801

PATIENT
  Age: 70 Year
  Sex: Male
  Weight: 98 kg

DRUGS (21)
  1. LORTAB [Concomitant]
     Route: 065
  2. VIOXX [Suspect]
     Indication: OSTEOARTHRITIS
     Route: 048
     Dates: start: 19990601, end: 20040930
  3. NEXIUM [Concomitant]
     Route: 065
  4. GABAPENTIN [Concomitant]
     Route: 065
  5. GLUCOPHAGE [Concomitant]
     Route: 065
  6. SYNTHROID [Concomitant]
     Route: 065
  7. CANDESARTAN [Concomitant]
     Route: 065
  8. FOLIC ACID [Concomitant]
     Route: 065
  9. LOMOTIL [Concomitant]
     Route: 065
  10. [THERAPY UNSPECIFIED] [Concomitant]
     Route: 065
  11. NAPROXEN [Concomitant]
     Route: 065
  12. SUCRALFATE [Concomitant]
     Route: 065
  13. ISOSORBIDE DINITRATE [Concomitant]
     Route: 065
  14. TRICOR [Concomitant]
     Route: 065
  15. RAMIPRIL [Concomitant]
     Route: 065
  16. SIMVASTATIN [Concomitant]
     Route: 065
  17. DOCUSATE SODIUM [Concomitant]
     Route: 065
  18. COREG [Concomitant]
     Route: 065
  19. NITROGLYCERIN [Concomitant]
     Route: 065
  20. ACETAMINOPHEN AND HYDROCODONE BITARTRATE [Concomitant]
     Route: 065
  21. PROTONIX [Concomitant]
     Route: 065

REACTIONS (5)
  - CARDIAC DISORDER [None]
  - CAROTID ENDARTERECTOMY [None]
  - CHOLECYSTECTOMY [None]
  - GALLBLADDER DISORDER [None]
  - MYOCARDIAL INFARCTION [None]
